FAERS Safety Report 10931233 (Version 1)
Quarter: 2015Q1

REPORT INFORMATION
  Report Type: Spontaneous
  Country: DE (occurrence: DE)
  Receive Date: 20150319
  Receipt Date: 20150319
  Transmission Date: 20150721
  Serious: Yes (Other)
  Sender: FDA-Public Use
  Company Number: DE-TEVA-547243GER

PATIENT
  Age: 1 Day
  Sex: Male

DRUGS (3)
  1. FOLIO FORTE [Concomitant]
     Active Substance: FOLIC ACID\VITAMINS
     Indication: PROPHYLAXIS OF NEURAL TUBE DEFECT
     Dosage: .8 MILLIGRAM DAILY;
     Route: 064
  2. PAROXETIN [Suspect]
     Active Substance: PAROXETINE HYDROCHLORIDE
     Indication: DEPRESSION
     Dosage: 40 MILLIGRAM DAILY; 40 MG/D UNTIL 20
     Route: 064
     Dates: start: 20130715, end: 20140313
  3. SALBUTAMOL [Concomitant]
     Active Substance: ALBUTEROL
     Indication: ASTHMA
     Dosage: ON DEMAND
     Route: 064

REACTIONS (3)
  - Intraventricular haemorrhage neonatal [Recovering/Resolving]
  - Foetal exposure during pregnancy [Unknown]
  - Premature baby [Recovering/Resolving]

NARRATIVE: CASE EVENT DATE: 20140313
